FAERS Safety Report 19070043 (Version 1)
Quarter: 2021Q1

REPORT INFORMATION
  Report Type: Spontaneous
  Country: US (occurrence: US)
  Receive Date: 20210329
  Receipt Date: 20210329
  Transmission Date: 20210420
  Serious: No
  Sender: FDA-Public Use
  Company Number: US-ELI_LILLY_AND_COMPANY-US202103006187

PATIENT
  Age: 52 Year
  Sex: Male

DRUGS (2)
  1. VERZENIO [Suspect]
     Active Substance: ABEMACICLIB
     Indication: GLIOBLASTOMA
     Dosage: 50 MG, UNKNOWN (HALF DOSE)
     Route: 048
  2. NELFINAVIR [Concomitant]
     Active Substance: NELFINAVIR
     Indication: GLIOBLASTOMA
     Route: 065

REACTIONS (2)
  - Off label use [Unknown]
  - Neutropenia [Unknown]
